FAERS Safety Report 6280491-4 (Version None)
Quarter: 2009Q3

REPORT INFORMATION
  Report Type: 
  Country: None (occurrence: None)
  Receive Date: 20090724
  Receipt Date: 20080716
  Transmission Date: 20100115
  Serious: No
  Sender: FDA-Public Use
  Company Number: A0739149A

PATIENT
  Sex: Female

DRUGS (3)
  1. AVANDIA [Suspect]
     Route: 048
  2. GLUCOPHAGE [Suspect]
     Route: 048
  3. NIASPAN [Suspect]
     Route: 048

REACTIONS (3)
  - DIARRHOEA [None]
  - PRURITUS [None]
  - RASH [None]
